FAERS Safety Report 18566529 (Version 1)
Quarter: 2020Q4

REPORT INFORMATION
  Report Type: Spontaneous
  Country: US (occurrence: US)
  Receive Date: 20201201
  Receipt Date: 20201201
  Transmission Date: 20210114
  Serious: No
  Sender: FDA-Public Use
  Company Number: US-009507513-2011USA014933

PATIENT
  Sex: Female

DRUGS (2)
  1. MIRTAZAPINE. [Suspect]
     Active Substance: MIRTAZAPINE
     Dosage: 15 MILLIGRAM
  2. REMERON [Suspect]
     Active Substance: MIRTAZAPINE
     Dosage: 15 MG/ONE AND A HALF TABLET DAILY
     Route: 048

REACTIONS (2)
  - Joint swelling [Recovering/Resolving]
  - Product use issue [Unknown]
